FAERS Safety Report 6650075-4 (Version None)
Quarter: 2010Q1

REPORT INFORMATION
  Report Type: 
  Country: None (occurrence: None)
  Receive Date: 20100325
  Receipt Date: 20100317
  Transmission Date: 20100710
  Serious: Yes (Other)
  Sender: FDA-Public Use
  Company Number: CA-ASTRAZENECA-2010SE11663

PATIENT
  Age: 52 Year
  Sex: Male

DRUGS (8)
  1. CRESTOR [Suspect]
     Indication: HYPERCHOLESTEROLAEMIA
     Route: 048
     Dates: start: 20100303
  2. VITAMIN B-12 [Concomitant]
     Dates: start: 20100303
  3. METFORMIN HCL [Concomitant]
     Dates: start: 20100303
  4. SYNTHROID [Concomitant]
     Dates: start: 20100303
  5. RAMIPRIL [Concomitant]
  6. RAMIPRIL [Concomitant]
     Dates: start: 20100303
  7. CIPRODEX EARDOPRS [Concomitant]
     Dates: start: 20100303
  8. WARFARIN SODIUM [Concomitant]
     Dates: start: 20100203

REACTIONS (2)
  - ABDOMINAL PAIN UPPER [None]
  - PAIN IN EXTREMITY [None]
